FAERS Safety Report 24325573 (Version 1)
Quarter: 2024Q3

REPORT INFORMATION
  Report Type: Spontaneous
  Country: US (occurrence: US)
  Receive Date: 20240917
  Receipt Date: 20240917
  Transmission Date: 20241017
  Serious: No
  Sender: GE HEALTHCARE
  Company Number: US-GE HEALTHCARE-2024CSU007098

PATIENT
  Age: 44 Year
  Sex: Male
  Weight: 54.3 kg

DRUGS (1)
  1. OMNIPAQUE [Suspect]
     Active Substance: IOHEXOL
     Indication: Computerised tomogram abdomen
     Dosage: 500 ML, TOTAL
     Route: 048
     Dates: start: 20240624, end: 20240624

REACTIONS (3)
  - Incorrect product formulation administered [Recovered/Resolved]
  - Product label confusion [Recovered/Resolved]
  - Diarrhoea [Recovered/Resolved]

NARRATIVE: CASE EVENT DATE: 20240624
